FAERS Safety Report 12619844 (Version 2)
Quarter: 2016Q3

REPORT INFORMATION
  Report Type: Spontaneous
  Country: IT (occurrence: IT)
  Receive Date: 20160803
  Receipt Date: 20160830
  Transmission Date: 20161109
  Serious: Yes (Hospitalization)
  Sender: FDA-Public Use
  Company Number: IT-KADMON PHARMACEUTICALS, LLC-KAD201607-002837

PATIENT
  Age: 47 Year
  Sex: Male

DRUGS (10)
  1. EXVIERA [Suspect]
     Active Substance: DASABUVIR
     Indication: HEPATITIS C
     Dosage: FILM-COATED TABLET
     Route: 048
     Dates: start: 20160504, end: 20160511
  2. VIEKIRAX [Suspect]
     Active Substance: OMBITASVIR\PARITAPREVIR\RITONAVIR
     Dosage: FILM-COATED TABLET
     Route: 048
     Dates: start: 20160522, end: 20160530
  3. RIBAVIRIN. [Suspect]
     Active Substance: RIBAVIRIN
     Dosage: TABLET
     Route: 048
     Dates: start: 20160522, end: 20160530
  4. VIEKIRAX [Suspect]
     Active Substance: OMBITASVIR\PARITAPREVIR\RITONAVIR
     Indication: HEPATITIS C
     Dosage: FILM-COATED TABLET
     Route: 048
     Dates: start: 20160504, end: 20160511
  5. ALDACTONE [Concomitant]
     Active Substance: SPIRONOLACTONE
     Dosage: TABLET
     Route: 048
  6. EXVIERA [Suspect]
     Active Substance: DASABUVIR
     Dosage: FILM-COATED TABLET
     Route: 048
     Dates: start: 20160522, end: 20160530
  7. ATENOLOL. [Concomitant]
     Active Substance: ATENOLOL
     Dosage: TABLET
     Route: 048
  8. ADVAGRAF [Concomitant]
     Active Substance: TACROLIMUS
     Indication: PROPHYLAXIS AGAINST TRANSPLANT REJECTION
     Dosage: HARD CAPSULE
     Route: 048
  9. RIBAVIRIN. [Suspect]
     Active Substance: RIBAVIRIN
     Indication: HEPATITIS C
     Dosage: TABLET
     Route: 048
     Dates: start: 20160504, end: 20160511
  10. LASIX [Concomitant]
     Active Substance: FUROSEMIDE
     Dosage: TABLET
     Route: 048

REACTIONS (1)
  - Generalised tonic-clonic seizure [Recovered/Resolved]

NARRATIVE: CASE EVENT DATE: 20160530
